FAERS Safety Report 7249265 (Version 2)
Quarter: 2012Q4

REPORT INFORMATION
  Report Type: 
  Country: US (occurrence: US)
  Receive Date: 20100119
  Receipt Date: 20121102
  Transmission Date: 20130627
  Serious: Yes (Hospitalization, Other)
  Sender: FDA-Public Use
  Company Number: US-ASTRAZENECA-2010SE01130

PATIENT
  Age: 62 Year
  Sex: Female

DRUGS (15)
  1. NEXIUM [Suspect]
     Indication: GASTROOESOPHAGEAL REFLUX DISEASE
     Route: 048
  2. PRILOSEC DELAYED-RELEASE CAPSULES [Suspect]
     Indication: GASTROOESOPHAGEAL REFLUX DISEASE
     Route: 048
  3. SEROQUEL [Suspect]
     Indication: DEPRESSION
     Route: 048
  4. CELEXA [Concomitant]
  5. SEROCON [Concomitant]
     Dosage: TWO TIMES A DAY
  6. VITAMIN B [Concomitant]
  7. ATENOLOL [Concomitant]
  8. K-DUR [Concomitant]
  9. REMERON [Concomitant]
  10. CALCIUM [Concomitant]
  11. AMBIEN [Concomitant]
  12. THIAMINE [Concomitant]
     Dosage: DAILY
  13. ALLEGRA [Concomitant]
  14. TOPAMAX [Concomitant]
  15. ELAVIL [Concomitant]

REACTIONS (5)
  - Depression [Unknown]
  - Eating disorder [Unknown]
  - Weight decreased [Unknown]
  - Gastrooesophageal reflux disease [Unknown]
  - Drug ineffective for unapproved indication [Unknown]
